FAERS Safety Report 9963448 (Version 1)
Quarter: 2014Q1

REPORT INFORMATION
  Report Type: Report from Study
  Country: US (occurrence: US)
  Receive Date: 20140305
  Receipt Date: 20140305
  Transmission Date: 20141002
  Serious: No
  Sender: FDA-Public Use
  Company Number: US-ABBVIE-13P-163-1120106-00

PATIENT
  Age: 46 Year
  Sex: Female

DRUGS (6)
  1. HUMIRA [Suspect]
     Indication: CROHN^S DISEASE
     Dates: start: 20130612, end: 20130612
  2. HUMIRA [Suspect]
     Dates: start: 20130626, end: 20130626
  3. HUMIRA [Suspect]
     Dates: start: 20130710
  4. OMEPRAZOLE [Concomitant]
     Indication: DYSPEPSIA
     Dosage: 40 MG DAILY
  5. PRENATAL VITAMINS [Concomitant]
     Indication: BLOOD IRON
     Dosage: PATIENT HAS BEEN TAKING FOR 3 YEARS
  6. GARLIC [Concomitant]
     Indication: PROPHYLAXIS
     Dosage: 1000 MG DAILY

REACTIONS (2)
  - Fatigue [Not Recovered/Not Resolved]
  - Oedema peripheral [Not Recovered/Not Resolved]
